FAERS Safety Report 23000576 (Version 2)
Quarter: 2023Q4

REPORT INFORMATION
  Report Type: Spontaneous
  Country: CN (occurrence: None)
  Receive Date: 20230928
  Receipt Date: 20231018
  Transmission Date: 20240110
  Serious: Yes (Hospitalization)
  Sender: FDA-Public Use
  Company Number: 2023A206158

PATIENT
  Age: 70 Year
  Sex: Female

DRUGS (1)
  1. SYMBICORT [Suspect]
     Active Substance: BUDESONIDE\FORMOTEROL FUMARATE DIHYDRATE
     Dosage: 320 UG/9 UG/INHALATION UNKNOWN UNKNOWN
     Route: 055

REACTIONS (5)
  - Dyspnoea [Unknown]
  - Device delivery system issue [Recovered/Resolved]
  - Device malfunction [Recovered/Resolved]
  - Drug dose omission by device [Recovered/Resolved]
  - Device use issue [Recovered/Resolved]
